FAERS Safety Report 5595328-6 (Version None)
Quarter: 2008Q1

REPORT INFORMATION
  Report Type: 
  Country: None (occurrence: None)
  Receive Date: 20080117
  Receipt Date: 20080107
  Transmission Date: 20080703
  Serious: Yes (Hospitalization, Other)
  Sender: FDA-Public Use
  Company Number: FR-PFIZER INC-2008002596

PATIENT
  Age: 70 Year
  Sex: Male

DRUGS (6)
  1. TAHOR [Suspect]
     Indication: MYOCARDIAL INFARCTION
  2. AMIODARONE [Suspect]
  3. BETA BLOCKING AGENTS [Concomitant]
  4. PLAVIX [Concomitant]
  5. ALL OTHER THERAPEUTIC PRODUCTS [Concomitant]
  6. ASPIRIN [Concomitant]

REACTIONS (3)
  - CYTOLYTIC HEPATITIS [None]
  - HEPATITIS CHOLESTATIC [None]
  - RHABDOMYOLYSIS [None]
